FAERS Safety Report 4436280-6 (Version None)
Quarter: 2004Q3

REPORT INFORMATION
  Report Type: 
  Country: None (occurrence: None)
  Receive Date: 20040830
  Receipt Date: 20040628
  Transmission Date: 20050211
  Serious: Yes (Other)
  Sender: FDA-Public Use
  Company Number: US-BRISTOL-MYERS SQUIBB COMPANY-12626594

PATIENT
  Age: 55 Year
  Sex: Male
  Weight: 79 kg

DRUGS (6)
  1. ERBITUX [Suspect]
     Indication: COLON CANCER
     Dosage: 1ST INFUSION 18-JUN-04 (APPROX. 750 MG), 2ND INFUSION 25-JUN-04 (APPROX 425 MG)
     Route: 042
     Dates: start: 20040618, end: 20040618
  2. BENADRYL [Concomitant]
     Indication: PREMEDICATION
     Dosage: GIVEN BEFORE BOTH DOSES OF CETUXIMAB
     Dates: start: 20040618, end: 20040618
  3. DECADRON [Concomitant]
     Indication: PREMEDICATION
     Dosage: GIVEN BEFORE BOTH DOSES OF CETUXIMAB
     Dates: start: 20040618, end: 20040618
  4. ZOFRAN [Concomitant]
     Indication: PREMEDICATION
     Dosage: GIVEN BEFORE BOTH DOSES OF CETUXIMAB
     Dates: start: 20040618, end: 20040618
  5. ATROPINE [Concomitant]
     Indication: PREMEDICATION
     Dosage: GIVEN BEFORE BOTH DOSES OF CETUXIMAB
     Dates: start: 20040618, end: 20040618
  6. LISINOPRIL [Concomitant]

REACTIONS (1)
  - RASH PRURITIC [None]
